FAERS Safety Report 18698909 (Version 13)
Quarter: 2022Q3

REPORT INFORMATION
  Report Type: Other
  Country: DE (occurrence: None)
  Receive Date: 20210105
  Receipt Date: 20220718
  Transmission Date: 20221026
  Serious: Yes (Hospitalization, Other)
  Sender: FDA-Public Use
  Company Number: DE-ROCHE-2225432

PATIENT
  Age: 67 Year
  Sex: Male
  Weight: 88 kg

DRUGS (20)
  1. OCREVUS [Suspect]
     Active Substance: OCRELIZUMAB
     Indication: Primary progressive multiple sclerosis
     Route: 042
     Dates: start: 20180515
  2. OCREVUS [Suspect]
     Active Substance: OCRELIZUMAB
     Route: 042
     Dates: start: 20190515
  3. OCREVUS [Suspect]
     Active Substance: OCRELIZUMAB
     Route: 042
     Dates: start: 20200416
  4. OCREVUS [Suspect]
     Active Substance: OCRELIZUMAB
     Route: 042
  5. OCREVUS [Suspect]
     Active Substance: OCRELIZUMAB
     Route: 042
     Dates: start: 20210301
  6. DALFAMPRIDINE [Concomitant]
     Active Substance: DALFAMPRIDINE
     Dates: start: 20150811
  7. BACLOFEN [Concomitant]
     Active Substance: BACLOFEN
     Indication: Muscle spasticity
     Route: 048
     Dates: start: 20160416
  8. XARELTO [Concomitant]
     Active Substance: RIVAROXABAN
  9. CANDESARTAN [Concomitant]
     Active Substance: CANDESARTAN
  10. GABAPENTIN [Concomitant]
     Active Substance: GABAPENTIN
  11. AMLODIPINE BESYLATE [Concomitant]
     Active Substance: AMLODIPINE BESYLATE
  12. NEBIVOLOL [Concomitant]
     Active Substance: NEBIVOLOL
  13. VENLAFAXINE HYDROCHLORIDE [Concomitant]
     Active Substance: VENLAFAXINE HYDROCHLORIDE
     Indication: Depression
     Route: 048
     Dates: start: 20170314
  14. VENLAFAXINE HYDROCHLORIDE [Concomitant]
     Active Substance: VENLAFAXINE HYDROCHLORIDE
  15. SPASMEX (GERMANY) [Concomitant]
  16. TAMSULOSIN [Concomitant]
     Active Substance: TAMSULOSIN
  17. DIGITOXIN [Concomitant]
     Active Substance: DIGITOXIN
  18. DUTASTERIDE\TAMSULOSIN [Concomitant]
     Active Substance: DUTASTERIDE\TAMSULOSIN
     Dosage: 0.5 MG/0.4 MG
  19. SODIUM PROPIONATE [Concomitant]
     Active Substance: SODIUM PROPIONATE
  20. MOMETASONE [Concomitant]
     Active Substance: MOMETASONE
     Route: 045

REACTIONS (36)
  - Cholecystectomy [Recovered/Resolved]
  - Pancreatic carcinoma [Recovered/Resolved]
  - Inguinal hernia [Recovered/Resolved]
  - Ear pain [Not Recovered/Not Resolved]
  - Cholecystitis [Recovered/Resolved]
  - Papillary cystadenoma lymphomatosum [Recovered/Resolved]
  - Leukocytosis [Unknown]
  - Off label use [Unknown]
  - Fatigue [Not Recovered/Not Resolved]
  - Skin irritation [Recovered/Resolved]
  - Tendon rupture [Recovered/Resolved]
  - Tremor [Recovered/Resolved]
  - Paraesthesia [Recovered/Resolved]
  - Disturbance in attention [Not Recovered/Not Resolved]
  - Muscle spasticity [Not Recovered/Not Resolved]
  - Gastrointestinal disorder [Recovered/Resolved]
  - Mobility decreased [Recovering/Resolving]
  - Asthenia [Recovering/Resolving]
  - Arthralgia [Recovered/Resolved]
  - Tendonitis [Recovering/Resolving]
  - Osteoarthritis [Recovered/Resolved]
  - Atonic urinary bladder [Recovered/Resolved]
  - Memory impairment [Not Recovered/Not Resolved]
  - Gait disturbance [Not Recovered/Not Resolved]
  - Loss of control of legs [Recovered/Resolved]
  - Fall [Unknown]
  - Contusion [Recovered/Resolved]
  - Allergic cough [Not Recovered/Not Resolved]
  - Haematoma [Recovered/Resolved]
  - Dyspepsia [Recovered/Resolved]
  - Gastritis [Not Recovered/Not Resolved]
  - Periostitis [Recovered/Resolved]
  - Skin haemorrhage [Recovered/Resolved]
  - Lymphadenitis [Recovered/Resolved]
  - Haemorrhage [Unknown]
  - Stress [Recovered/Resolved]

NARRATIVE: CASE EVENT DATE: 20181130
